FAERS Safety Report 8892197 (Version 1)
Quarter: 2012Q4

REPORT INFORMATION
  Report Type: 
  Country: US (occurrence: US)
  Receive Date: 20121107
  Receipt Date: 20121107
  Transmission Date: 20130627
  Serious: No
  Sender: FDA-Public Use
  Company Number: US-AMGEN-USASP2011055476

PATIENT
  Age: 60 Year
  Sex: Male

DRUGS (7)
  1. ENBREL [Suspect]
     Indication: PRODUCT USED FOR UNKNOWN INDICATION
     Dosage: 25 mg, 2 times/wk
     Route: 058
  2. METHOTREXATE [Concomitant]
     Dosage: 2.5 mg, UNK
  3. VITAMIN C [Concomitant]
     Dosage: 100 mg, UNK
  4. MULTIVITAMIN [Concomitant]
  5. ADVIL [Concomitant]
     Dosage: 200 mg, UNK
  6. ZINC [Concomitant]
     Dosage: 30 mg, UNK
  7. CHONDROITIN W/GLUCOSAMINE [Concomitant]

REACTIONS (1)
  - Nasopharyngitis [Unknown]
